FAERS Safety Report 23560074 (Version 1)
Quarter: 2024Q1

REPORT INFORMATION
  Report Type: Spontaneous
  Country: US (occurrence: US)
  Receive Date: 20240223
  Receipt Date: 20240223
  Transmission Date: 20240410
  Serious: Yes (Hospitalization)
  Sender: FDA-Public Use
  Company Number: US-PFIZER INC-PV202400003777

PATIENT
  Age: 81 Year
  Sex: Male

DRUGS (1)
  1. LORBRENA [Suspect]
     Active Substance: LORLATINIB
     Dosage: 100 MG

REACTIONS (5)
  - Influenza [Recovering/Resolving]
  - Asthenia [Recovering/Resolving]
  - Seizure [Recovering/Resolving]
  - Atrial fibrillation [Recovering/Resolving]
  - Hypoxia [Recovering/Resolving]
